FAERS Safety Report 6238105-5 (Version None)
Quarter: 2009Q2

REPORT INFORMATION
  Report Type: 
  Country: None (occurrence: None)
  Receive Date: 20090622
  Receipt Date: 20090406
  Transmission Date: 20091009
  Serious: Yes (Hospitalization)
  Sender: FDA-Public Use
  Company Number: JP-ALLERGAN-0908413US

PATIENT
  Age: 9 Year
  Sex: Male

DRUGS (33)
  1. GATIFLOXACIN [Suspect]
     Indication: CONJUNCTIVAL HYPERAEMIA
     Dosage: UNK, Q2HR
     Route: 047
     Dates: start: 20071109, end: 20071111
  2. GATIFLOXACIN [Suspect]
     Indication: CORNEAL EPITHELIUM DEFECT
     Dosage: UNK, Q1HR
     Route: 047
     Dates: start: 20071112
  3. GATIFLOXACIN [Suspect]
     Indication: CORNEAL OPACITY
  4. FLUOROMETHOLONE 0.1% EYEDROPS [Suspect]
     Indication: CONJUNCTIVAL HYPERAEMIA
     Dosage: UNK, UNKNOWN
     Route: 047
     Dates: start: 20071108
  5. FLUOROMETHOLONE 0.1% EYEDROPS [Suspect]
     Indication: CORNEAL EPITHELIUM DEFECT
  6. PIMARCIN 1% OPHTHALMIC OINTMENT [SENJUA?] (PIMARICIN) [Suspect]
     Indication: CONJUNCTIVAL HYPERAEMIA
     Dosage: UNK, UNKNOWN
     Route: 047
     Dates: start: 20071101, end: 20071101
  7. PIMARCIN 1% OPHTHALMIC OINTMENT [SENJUA?] (PIMARICIN) [Suspect]
     Indication: CORNEAL EPITHELIUM DEFECT
     Dosage: UNK, SINGLE
     Route: 047
     Dates: start: 20071101
  8. PIMARCIN 1% OPHTHALMIC OINTMENT [SENJUA?] (PIMARICIN) [Suspect]
     Indication: CORNEAL OPACITY
  9. PIMARCIN 1% OPHTHALMIC SUSPENSION [SENJUA?] (PIMARICIN) [Suspect]
     Indication: CONJUNCTIVAL HYPERAEMIA
     Dosage: UNK, Q2HR
     Route: 047
     Dates: start: 20071101, end: 20071101
  10. PIMARCIN 1% OPHTHALMIC SUSPENSION [SENJUA?] (PIMARICIN) [Suspect]
     Indication: CORNEAL EPITHELIUM DEFECT
     Dosage: UNK, Q1HR
     Route: 047
     Dates: start: 20071112
  11. PIMARCIN 1% OPHTHALMIC SUSPENSION [SENJUA?] (PIMARICIN) [Suspect]
     Indication: CORNEAL OPACITY
  12. OFTECTOR [Suspect]
     Indication: CONJUNCTIVAL HYPERAEMIA
     Dosage: UNK, UNKNOWN
     Route: 047
     Dates: start: 20071108
  13. OFTECTOR [Suspect]
     Indication: CORNEAL EPITHELIUM DEFECT
  14. TARIVID [Suspect]
     Indication: CONJUNCTIVAL HYPERAEMIA
     Dosage: UNK, UNKNOWN
     Route: 047
     Dates: start: 20071108
  15. TARIVID [Suspect]
     Indication: CORNEAL EPITHELIUM DEFECT
  16. COLIMY C OPHTHALMIC SOLUTION [Concomitant]
     Indication: CONJUNCTIVAL HYPERAEMIA
     Dosage: UNK, Q2HR
     Route: 047
     Dates: start: 20071109
  17. COLIMY C OPHTHALMIC SOLUTION [Concomitant]
     Indication: CORNEAL EPITHELIUM DEFECT
  18. COLIMY C OPHTHALMIC SOLUTION [Concomitant]
     Indication: CORNEAL OPACITY
  19. FLOMOX [Concomitant]
     Indication: CONJUNCTIVAL HYPERAEMIA
     Route: 048
     Dates: start: 20071109
  20. FLOMOX [Concomitant]
     Indication: CORNEAL EPITHELIUM DEFECT
  21. FLOMOX [Concomitant]
     Indication: CORNEAL OPACITY
  22. TOBRACIN OPHTHALMIC SOLUTION [Concomitant]
     Indication: CONJUNCTIVAL HYPERAEMIA
     Dosage: UNK, Q2HR
     Route: 047
     Dates: start: 20071101
  23. TOBRACIN OPHTHALMIC SOLUTION [Concomitant]
     Indication: CORNEAL EPITHELIUM DEFECT
     Route: 047
     Dates: start: 20071112
  24. TOBRACIN OPHTHALMIC SOLUTION [Concomitant]
     Indication: CORNEAL OPACITY
  25. TIENAM [Concomitant]
     Indication: CONJUNCTIVAL HYPERAEMIA
     Dosage: UNK, UNK
     Route: 042
     Dates: start: 20071101
  26. TIENAM [Concomitant]
     Indication: CORNEAL EPITHELIUM DEFECT
  27. TIENAM [Concomitant]
     Indication: CORNEAL OPACITY
  28. DIFLUCAN [Concomitant]
     Dosage: 0.2 %, UNK
     Route: 047
     Dates: start: 20071112
  29. MICONAZOLE NITRATE [Concomitant]
     Dosage: 0.1 %, Q1HR
     Route: 047
     Dates: start: 20071112
  30. CHLORHEXIDINE GLUCONATE [Concomitant]
     Dosage: 5 TIMES/DAY
     Dates: start: 20071101
  31. ATROPINE [Concomitant]
     Dosage: 0.5 %, UNK
     Route: 047
     Dates: start: 20071101
  32. TARIVID OPHTHALMIC OINTMENT [Concomitant]
     Dosage: UNK, UNK
     Route: 047
     Dates: start: 20071101
  33. FLUCONAZOLE [Concomitant]
     Dosage: UNK, UNK
     Route: 042
     Dates: start: 20071101

REACTIONS (4)
  - CONJUNCTIVAL HYPERAEMIA [None]
  - CORNEAL EPITHELIUM DEFECT [None]
  - CORNEAL OPACITY [None]
  - HYPERMETROPIA [None]
